FAERS Safety Report 8115155-5 (Version None)
Quarter: 2012Q1

REPORT INFORMATION
  Report Type: 
  Country: None (occurrence: None)
  Receive Date: 20120206
  Receipt Date: 20120127
  Transmission Date: 20120608
  Serious: Yes (Death, Other)
  Sender: FDA-Public Use
  Company Number: FR-GENZYME-CERZ-1002375

PATIENT
  Sex: Female
  Weight: 5.2 kg

DRUGS (1)
  1. CEREZYME [Suspect]
     Indication: GAUCHER'S DISEASE
     Dosage: UNK
     Route: 042
     Dates: start: 20110228, end: 20111212

REACTIONS (6)
  - CARDIO-RESPIRATORY ARREST [None]
  - PYREXIA [None]
  - CYANOSIS [None]
  - MALAISE [None]
  - NEUROLOGICAL DECOMPENSATION [None]
  - HYPOTONIA [None]
